FAERS Safety Report 11166933 (Version 1)
Quarter: 2015Q2

REPORT INFORMATION
  Report Type: Spontaneous
  Country: US (occurrence: US)
  Receive Date: 20150605
  Receipt Date: 20150605
  Transmission Date: 20150821
  Serious: Yes (Hospitalization, Other)
  Sender: FDA-Public Use
  Company Number: US-BRISTOL-MYERS SQUIBB COMPANY-BMS-2015-036293

PATIENT
  Age: 50 Year
  Sex: Female

DRUGS (4)
  1. FRAGMIN [Suspect]
     Active Substance: DALTEPARIN SODIUM
     Indication: HYPERCOAGULATION
     Route: 065
  2. COUMADIN [Suspect]
     Active Substance: WARFARIN SODIUM
     Indication: HYPERCOAGULATION
     Route: 065
  3. LOVENOX [Suspect]
     Active Substance: ENOXAPARIN SODIUM
     Indication: HYPERCOAGULATION
     Route: 065
  4. ARIXTRA [Suspect]
     Active Substance: FONDAPARINUX SODIUM
     Indication: HYPERCOAGULATION
     Dosage: UNK, QD
     Route: 065

REACTIONS (4)
  - Intra-abdominal haematoma [Recovering/Resolving]
  - Drug ineffective [Unknown]
  - Pulmonary thrombosis [Unknown]
  - Impaired work ability [Unknown]

NARRATIVE: CASE EVENT DATE: 2010
